FAERS Safety Report 13285716 (Version 1)
Quarter: 2017Q1

REPORT INFORMATION
  Report Type: Spontaneous
  Country: US (occurrence: US)
  Receive Date: 20170301
  Receipt Date: 20170301
  Transmission Date: 20170428
  Serious: No
  Sender: FDA-Public Use
  Company Number: None

PATIENT
  Sex: Male

DRUGS (1)
  1. HUMIRA [Suspect]
     Active Substance: ADALIMUMAB
     Dosage: 40MG/.8ML INJECT THE CONTENTS OF ONE PEN (40MG) SUBCUTANEOUSLY
     Route: 058
     Dates: start: 20161010

REACTIONS (1)
  - Aphthous ulcer [None]
